FAERS Safety Report 7013303-1 (Version None)
Quarter: 2010Q3

REPORT INFORMATION
  Report Type: 
  Country: None (occurrence: None)
  Receive Date: 20100909
  Receipt Date: 20100716
  Transmission Date: 20110219
  Serious: Yes (Other)
  Sender: FDA-Public Use
  Company Number: 2010SP039380

PATIENT

DRUGS (1)
  1. SAPHRIS [Suspect]
     Indication: PRODUCT USED FOR UNKNOWN INDICATION
     Dosage: 5 MG ; BID

REACTIONS (3)
  - DIAPHRAGMATIC DISORDER [None]
  - DYSPNOEA [None]
  - EXTRAPYRAMIDAL DISORDER [None]
